FAERS Safety Report 7301937-6 (Version None)
Quarter: 2011Q1

REPORT INFORMATION
  Report Type: 
  Country: None (occurrence: None)
  Receive Date: 20110218
  Receipt Date: 20110209
  Transmission Date: 20110831
  Serious: Yes (Other)
  Sender: FDA-Public Use
  Company Number: FR-ROCHE-758598

PATIENT
  Age: 72 Year
  Sex: Female

DRUGS (4)
  1. ZYMAD [Concomitant]
     Indication: OSTEOPENIA
  2. BONIVA [Suspect]
     Indication: OSTEOPENIA
     Route: 065
     Dates: start: 20100601, end: 20101201
  3. AVLOCARDYL [Concomitant]
     Indication: TREMOR
  4. AVLOCARDYL [Concomitant]

REACTIONS (4)
  - ARTHRALGIA [None]
  - BONE PAIN [None]
  - MYALGIA [None]
  - MUSCULOSKELETAL STIFFNESS [None]
